FAERS Safety Report 19359817 (Version 1)
Quarter: 2021Q2

REPORT INFORMATION
  Report Type: Spontaneous
  Country: MX (occurrence: MX)
  Receive Date: 20210601
  Receipt Date: 20210601
  Transmission Date: 20210717
  Serious: Yes (Death)
  Sender: FDA-Public Use
  Company Number: MX-ROCHE-2839802

PATIENT
  Age: 73 Year
  Sex: Male

DRUGS (4)
  1. EZETIMIBE. [Concomitant]
     Active Substance: EZETIMIBE
  2. SIMVASTATIN. [Concomitant]
     Active Substance: SIMVASTATIN
  3. MABTHERA [Suspect]
     Active Substance: RITUXIMAB
     Indication: RHEUMATOID ARTHRITIS
     Dosage: DAY 1 AND 15 EVERY 6 MONTHS
     Route: 042
     Dates: start: 2013, end: 2021
  4. COVID?19 VACCINE NOS. [Suspect]
     Active Substance: COVID-19 VACCINE NOS
     Indication: COVID-19
     Dosage: ONE DOSE
     Route: 065
     Dates: start: 2021, end: 2021

REACTIONS (5)
  - Pneumonia [Fatal]
  - Death [Fatal]
  - Cardiac failure [Fatal]
  - Respiratory failure [Fatal]
  - Blood disorder [Fatal]

NARRATIVE: CASE EVENT DATE: 2021
